FAERS Safety Report 25467400 (Version 3)
Quarter: 2025Q2

REPORT INFORMATION
  Report Type: Spontaneous
  Country: BR (occurrence: BR)
  Receive Date: 20250623
  Receipt Date: 20250630
  Transmission Date: 20250717
  Serious: Yes (Death, Hospitalization, Other)
  Sender: NOVARTIS
  Company Number: BR-002147023-NVSC2025BR097297

PATIENT
  Age: 42 Year
  Sex: Male
  Weight: 110 kg

DRUGS (2)
  1. MEKINIST [Suspect]
     Active Substance: TRAMETINIB DIMETHYL SULFOXIDE
     Indication: Product used for unknown indication
     Dosage: 2 MG, QD (1 TABLET A DAY) (WITH 30)
     Route: 048
     Dates: start: 202505, end: 202506
  2. TAFINLAR [Suspect]
     Active Substance: DABRAFENIB MESYLATE
     Indication: Product used for unknown indication
     Dosage: 75 MG, QD (4 TABLETS (AS REPORTED) (WITH 120) (1 TABLET A DAY)
     Route: 048
     Dates: start: 202505, end: 202506

REACTIONS (20)
  - Brain neoplasm [Fatal]
  - Cardiac arrest [Fatal]
  - Blood pressure decreased [Fatal]
  - Central nervous system lesion [Not Recovered/Not Resolved]
  - Spinal pain [Not Recovered/Not Resolved]
  - Neoplasm malignant [Not Recovered/Not Resolved]
  - Nerve compression [Not Recovered/Not Resolved]
  - Vomiting [Not Recovered/Not Resolved]
  - Sedation [Not Recovered/Not Resolved]
  - Dermatitis [Not Recovered/Not Resolved]
  - Rash [Not Recovered/Not Resolved]
  - Haematochezia [Not Recovered/Not Resolved]
  - Hepatitis [Not Recovered/Not Resolved]
  - Meningeal disorder [Not Recovered/Not Resolved]
  - Dysphagia [Not Recovered/Not Resolved]
  - Aphasia [Not Recovered/Not Resolved]
  - Temperature regulation disorder [Not Recovered/Not Resolved]
  - Pneumonia aspiration [Not Recovered/Not Resolved]
  - Hyporeflexia [Unknown]
  - Off label use [Unknown]

NARRATIVE: CASE EVENT DATE: 20250501
